FAERS Safety Report 5682253-5 (Version None)
Quarter: 2008Q1

REPORT INFORMATION
  Report Type: 
  Country: None (occurrence: None)
  Receive Date: 20080326
  Receipt Date: 20080326
  Transmission Date: 20080703
  Serious: Yes (Hospitalization)
  Sender: FDA-Public Use
  Company Number: None

PATIENT
  Age: 64 Year
  Sex: Male

DRUGS (3)
  1. CETUXIMAB [Suspect]
     Dosage: 500MG WEEKLY TIL HOSPITAL ADMISSION
     Route: 042
     Dates: start: 20071204, end: 20080304
  2. GEMCITABINE [Suspect]
  3. OXALIPLATIN [Suspect]

REACTIONS (7)
  - BODY TEMPERATURE DECREASED [None]
  - CHILLS [None]
  - GENERAL PHYSICAL HEALTH DETERIORATION [None]
  - HEART RATE DECREASED [None]
  - HYPOTENSION [None]
  - ORAL INTAKE REDUCED [None]
  - PYREXIA [None]
